FAERS Safety Report 9522282 (Version 1)
Quarter: 2013Q3

REPORT INFORMATION
  Report Type: Spontaneous
  Country: JP (occurrence: JP)
  Receive Date: 20130913
  Receipt Date: 20130913
  Transmission Date: 20140515
  Serious: Yes (Hospitalization, Other)
  Sender: FDA-Public Use
  Company Number: PHHY2013JP101517

PATIENT
  Sex: Female

DRUGS (6)
  1. DIOVAN [Suspect]
     Indication: HYPERTENSION
     Dosage: UNK UKN, UNK
     Route: 048
  2. WARFARIN [Concomitant]
     Dosage: UNK UKN, UNK
     Route: 048
  3. RENIVACE [Concomitant]
     Dosage: UNK UKN, UNK
     Route: 048
  4. LANSOPRAZOLE [Concomitant]
     Dosage: UNK UKN, UNK
     Route: 048
  5. SELARA [Concomitant]
     Dosage: UNK UKN, UNK
     Route: 048
  6. MAINTATE [Concomitant]
     Dosage: UNK UKN, UNK
     Route: 048

REACTIONS (6)
  - Cardiac failure [Unknown]
  - Spinal column stenosis [Unknown]
  - Spondylolisthesis [Unknown]
  - Nasopharyngitis [Unknown]
  - Drug hypersensitivity [Recovered/Resolved]
  - Rash [Recovered/Resolved]
